FAERS Safety Report 24973562 (Version 1)
Quarter: 2025Q1

REPORT INFORMATION
  Report Type: Report from Study
  Country: US (occurrence: US)
  Receive Date: 20250216
  Receipt Date: 20250216
  Transmission Date: 20250408
  Serious: Yes (Other)
  Sender: JOHNSON AND JOHNSON
  Company Number: US-ABBVIE-6134939

PATIENT
  Sex: Male

DRUGS (1)
  1. IMBRUVICA [Suspect]
     Active Substance: IBRUTINIB
     Indication: Product used for unknown indication
     Route: 048

REACTIONS (5)
  - Thrombosis [Unknown]
  - Muscle spasms [Unknown]
  - Rhinorrhoea [Unknown]
  - Dry mouth [Unknown]
  - Dehydration [Unknown]
